FAERS Safety Report 5566915-6 (Version None)
Quarter: 2007Q4

REPORT INFORMATION
  Report Type: 
  Country: None (occurrence: None)
  Receive Date: 20071219
  Receipt Date: 20070123
  Transmission Date: 20080405
  Serious: No
  Sender: FDA-Public Use
  Company Number: US-BRISTOL-MYERS SQUIBB COMPANY-13660717

PATIENT
  Age: 87 Year
  Sex: Female

DRUGS (2)
  1. PRAVACHOL [Suspect]
     Dates: start: 20060801
  2. PLAVIX [Suspect]
     Indication: ARTERIOSCLEROSIS
     Dates: start: 20060801

REACTIONS (2)
  - DIZZINESS [None]
  - PAIN IN EXTREMITY [None]
